FAERS Safety Report 9387745 (Version 3)
Quarter: 2014Q1

REPORT INFORMATION
  Report Type: Spontaneous
  Country: US (occurrence: US)
  Receive Date: 20130708
  Receipt Date: 20140218
  Transmission Date: 20141002
  Serious: Yes (Life-Threatening, Hospitalization)
  Sender: FDA-Public Use
  Company Number: US-BAYER-2013-083057

PATIENT
  Age: 24 Year
  Sex: Female
  Weight: 65.31 kg

DRUGS (11)
  1. YAZ [Suspect]
     Indication: CONTRACEPTION
     Dosage: UNK
     Dates: start: 200802, end: 200811
  2. YAZ [Suspect]
     Indication: ACNE
  3. YASMIN [Suspect]
     Indication: MENSTRUAL CYCLE MANAGEMENT
  4. YASMIN [Suspect]
     Indication: ACNE
  5. ALBUTEROL INHALER [Concomitant]
     Dosage: 90 MCG
     Route: 045
     Dates: start: 20081104
  6. ALBUTEROL INHALER [Concomitant]
     Dosage: UNK
     Route: 045
     Dates: start: 20081104
  7. ALBUTEROL INHALER [Concomitant]
     Dosage: 17 G, UNK
     Route: 045
     Dates: start: 20081104
  8. VICODIN [Concomitant]
  9. ALEVE [Concomitant]
  10. IBUPROFEN [Concomitant]
     Dosage: UNK
     Dates: start: 2003
  11. TYLENOL [PARACETAMOL] [Concomitant]

REACTIONS (14)
  - Pulmonary embolism [Recovering/Resolving]
  - Deep vein thrombosis [None]
  - Back pain [None]
  - Musculoskeletal pain [None]
  - Anhedonia [None]
  - Anxiety [None]
  - Injury [Recovering/Resolving]
  - Emotional distress [None]
  - Fear of disease [None]
  - Psychogenic pain disorder [None]
  - Pleural effusion [Recovering/Resolving]
  - Chest pain [Recovering/Resolving]
  - Dyspnoea [Recovering/Resolving]
  - Fatigue [Recovering/Resolving]
